FAERS Safety Report 5548121-4 (Version None)
Quarter: 2007Q4

REPORT INFORMATION
  Report Type: 
  Country: None (occurrence: None)
  Receive Date: 20071128
  Receipt Date: 20070410
  Transmission Date: 20080405
  Serious: Yes (Other)
  Sender: FDA-Public Use
  Company Number: 2007019740

PATIENT
  Age: 93 Year
  Sex: Male
  Weight: 61.2 kg

DRUGS (4)
  1. LIPITOR [Suspect]
     Indication: BLOOD CHOLESTEROL INCREASED
     Dosage: 10 MG (10 MG, 1 IN 1 D)
     Dates: start: 20040306
  2. HYDROCHLOROTHIAZIDE [Concomitant]
  3. LUPRON [Concomitant]
  4. MULTIVITAMIN [Concomitant]

REACTIONS (1)
  - GLAUCOMA [None]
